FAERS Safety Report 19518817 (Version 2)
Quarter: 2021Q3

REPORT INFORMATION
  Report Type: Spontaneous
  Country: IT (occurrence: IT)
  Receive Date: 20210712
  Receipt Date: 20210729
  Transmission Date: 20211014
  Serious: Yes (Disabling)
  Sender: FDA-Public Use
  Company Number: IT-ORGANON-O2107ITA000586

PATIENT
  Age: 25 Year
  Sex: Male
  Weight: 75 kg

DRUGS (1)
  1. PROPECIA [Suspect]
     Active Substance: FINASTERIDE
     Indication: SEBORRHOEIC ALOPECIA
     Dosage: 1 MILLIGRAM, QD (FORMULATION REPORTED AS ORAL SOLUTION)
     Dates: start: 20121001, end: 20180901

REACTIONS (5)
  - Testicular pain [Not Recovered/Not Resolved]
  - Amnesia [Not Recovered/Not Resolved]
  - Erectile dysfunction [Not Recovered/Not Resolved]
  - Anxiety [Not Recovered/Not Resolved]
  - Depression [Not Recovered/Not Resolved]

NARRATIVE: CASE EVENT DATE: 20180901
